FAERS Safety Report 15965010 (Version 13)
Quarter: 2022Q1

REPORT INFORMATION
  Report Type: Other
  Country: GB (occurrence: GB)
  Receive Date: 20190215
  Receipt Date: 20220323
  Transmission Date: 20220423
  Serious: Yes (Death, Other)
  Sender: FDA-Public Use
  Company Number: GB-ROCHE-1760118

PATIENT
  Age: 78 Year
  Sex: Female

DRUGS (53)
  1. TRASTUZUMAB [Suspect]
     Active Substance: TRASTUZUMAB
     Indication: Breast cancer metastatic
     Dosage: LOADING DOSE
     Route: 041
     Dates: start: 20160225, end: 20160225
  2. TRASTUZUMAB [Suspect]
     Active Substance: TRASTUZUMAB
     Dosage: MAINTAINENCE DOSE.
     Route: 042
     Dates: start: 20160225, end: 20160617
  3. TRASTUZUMAB [Suspect]
     Active Substance: TRASTUZUMAB
     Route: 042
     Dates: start: 20160707, end: 20180822
  4. ADO-TRASTUZUMAB EMTANSINE [Suspect]
     Active Substance: ADO-TRASTUZUMAB EMTANSINE
     Indication: Breast cancer metastatic
     Route: 042
     Dates: start: 20180928, end: 20190315
  5. PERTUZUMAB [Suspect]
     Active Substance: PERTUZUMAB
     Indication: Breast cancer metastatic
     Dosage: LOADING DOSE
     Route: 042
     Dates: start: 20160225, end: 20160225
  6. PERTUZUMAB [Suspect]
     Active Substance: PERTUZUMAB
     Dosage: MAINTAINENCE DOSE
     Route: 042
     Dates: start: 20160225, end: 20180704
  7. DOCETAXEL [Suspect]
     Active Substance: DOCETAXEL
     Indication: Breast cancer metastatic
     Route: 042
     Dates: start: 20160226, end: 20160226
  8. LETROZOLE [Suspect]
     Active Substance: LETROZOLE
     Indication: Product used for unknown indication
     Route: 048
     Dates: start: 20160413, end: 20180704
  9. NERATINIB [Suspect]
     Active Substance: NERATINIB
     Indication: Product used for unknown indication
     Route: 048
     Dates: start: 20190403
  10. TAMOXIFEN [Suspect]
     Active Substance: TAMOXIFEN
     Indication: Breast cancer metastatic
     Route: 048
     Dates: start: 20180704, end: 20180915
  11. ACTRAPID [Concomitant]
     Active Substance: INSULIN HUMAN
     Route: 058
     Dates: start: 20190620, end: 20190705
  12. AMLODIPINE [Concomitant]
     Active Substance: AMLODIPINE BESYLATE
     Indication: Hypertension
     Route: 048
  13. POTASSIUM CHLORIDE [Concomitant]
     Active Substance: POTASSIUM CHLORIDE
     Dosage: EVERY 3-4WEEKS FOR 9 CYCLES THEN 3 MONTS
     Route: 042
     Dates: start: 20190611, end: 20190620
  14. PHOSPHATE-SANDOZ (UNITED KINGDOM) [Concomitant]
     Indication: Hypophosphataemia
     Dosage: 2 TABLETS
     Route: 048
     Dates: start: 20190611, end: 20190614
  15. LINAGLIPTIN [Concomitant]
     Active Substance: LINAGLIPTIN
     Route: 048
     Dates: start: 201809, end: 201905
  16. ATORVASTATIN [Concomitant]
     Active Substance: ATORVASTATIN
     Route: 048
  17. BENZYDAMINE HYDROCHLORIDE [Concomitant]
     Active Substance: BENZYDAMINE HYDROCHLORIDE
     Indication: Glossodynia
     Route: 061
     Dates: start: 20190606, end: 20190705
  18. BUDESONIDE [Concomitant]
     Active Substance: BUDESONIDE
     Route: 048
     Dates: start: 20190403
  19. CANDESARTAN [Concomitant]
     Active Substance: CANDESARTAN
     Route: 048
  20. CHLORHEXIDINE GLUCONATE [Concomitant]
     Active Substance: CHLORHEXIDINE GLUCONATE
     Dosage: MOUTH WASH
     Route: 048
     Dates: start: 20160225
  21. CINACALCET [Concomitant]
     Active Substance: CINACALCET
     Indication: Hypercalcaemia of malignancy
     Route: 048
     Dates: start: 20190413
  22. DENOSUMAB [Concomitant]
     Active Substance: DENOSUMAB
     Route: 058
     Dates: start: 20180110
  23. DEXAMETHASONE [Concomitant]
     Active Substance: DEXAMETHASONE
     Route: 048
     Dates: start: 20160225
  24. DENOSUMAB [Concomitant]
     Active Substance: DENOSUMAB
     Dosage: EVERY 3-4 WEEKS
     Route: 058
     Dates: start: 20180110, end: 20190426
  25. DOCUSATE SODIUM [Concomitant]
     Active Substance: DOCUSATE SODIUM
     Route: 048
  26. DOMPERIDONE [Concomitant]
     Active Substance: DOMPERIDONE
     Route: 048
     Dates: start: 20160225
  27. GLICLAZIDE [Concomitant]
     Active Substance: GLICLAZIDE
     Route: 048
     Dates: start: 201809, end: 20190424
  28. GLICLAZIDE [Concomitant]
     Active Substance: GLICLAZIDE
     Route: 048
     Dates: start: 20190425, end: 201905
  29. GLICLAZIDE [Concomitant]
     Active Substance: GLICLAZIDE
     Route: 048
     Dates: start: 20190620, end: 20190705
  30. AMLODIPINE [Concomitant]
     Active Substance: AMLODIPINE BESYLATE
     Indication: Hypertension
     Route: 048
     Dates: start: 20180915, end: 20190529
  31. ZOLEDRONIC ACID [Concomitant]
     Active Substance: ZOLEDRONIC ACID
     Dosage: EVERY 3-4WEEKS FOR 9 CYCLES THEN 3 MONTS
     Route: 042
     Dates: start: 20160414, end: 20170112
  32. ZOLEDRONIC ACID [Concomitant]
     Active Substance: ZOLEDRONIC ACID
     Route: 042
     Dates: start: 20170209, end: 20170323
  33. ZOLEDRONIC ACID [Concomitant]
     Active Substance: ZOLEDRONIC ACID
     Route: 042
     Dates: start: 20170628, end: 20171220
  34. ZOLEDRONIC ACID [Concomitant]
     Active Substance: ZOLEDRONIC ACID
     Route: 042
     Dates: start: 20190408, end: 20190408
  35. ZOLEDRONIC ACID [Concomitant]
     Active Substance: ZOLEDRONIC ACID
     Route: 042
     Dates: start: 20190510, end: 20190529
  36. POLYETHYLENE GLYCOLS [Concomitant]
     Active Substance: POLYETHYLENE GLYCOLS
     Dosage: SACHET
  37. MAGNESIUM GLYCEROPHOSPHATE [Concomitant]
     Active Substance: MAGNESIUM GLYCEROPHOSPHATE
     Indication: Hypomagnesaemia
     Route: 048
     Dates: start: 20160526, end: 20160530
  38. METFORMIN [Concomitant]
     Active Substance: METFORMIN HYDROCHLORIDE
  39. METOCLOPRAMIDE [Concomitant]
     Active Substance: METOCLOPRAMIDE
     Route: 048
  40. MESALAMINE [Concomitant]
     Active Substance: MESALAMINE
     Indication: Gastrointestinal motility disorder
     Route: 048
     Dates: start: 20170523, end: 2017
  41. SODIUM PHOSPHATE, MONOBASIC, ANHYDROUS [Concomitant]
     Active Substance: SODIUM PHOSPHATE, MONOBASIC, ANHYDROUS
     Indication: Blood phosphorus decreased
     Route: 048
     Dates: start: 20190423, end: 20190425
  42. SODIUM PHOSPHATE, MONOBASIC, ANHYDROUS [Concomitant]
     Active Substance: SODIUM PHOSPHATE, MONOBASIC, ANHYDROUS
     Route: 048
     Dates: start: 20190611, end: 20190614
  43. SODIUM PHOSPHATE, MONOBASIC, ANHYDROUS [Concomitant]
     Active Substance: SODIUM PHOSPHATE, MONOBASIC, ANHYDROUS
     Route: 048
     Dates: start: 20190618, end: 20190625
  44. POTASSIUM CHLORIDE [Concomitant]
     Active Substance: POTASSIUM CHLORIDE
     Indication: Blood potassium decreased
     Dosage: MMOL/L
     Route: 042
     Dates: start: 20190611, end: 20190620
  45. RIVAROXABAN [Concomitant]
     Active Substance: RIVAROXABAN
     Route: 048
     Dates: start: 20181128
  46. SANDO-K [Concomitant]
     Dosage: EFFERVESCENT?2 TABLETS
     Route: 048
     Dates: start: 20160322, end: 20160326
  47. SITAGLIPTIN [Concomitant]
     Active Substance: SITAGLIPTIN
     Route: 048
  48. TINZAPARIN [Concomitant]
     Active Substance: TINZAPARIN
     Dosage: 11000 UNIT
     Route: 058
     Dates: start: 20180915, end: 20181128
  49. TRAMADOL HYDROCHLORIDE [Concomitant]
     Active Substance: TRAMADOL HYDROCHLORIDE
     Route: 048
     Dates: start: 20160217
  50. TRIMETHOPRIM [Concomitant]
     Active Substance: TRIMETHOPRIM
     Indication: Urinary tract infection
     Route: 048
     Dates: start: 20190412, end: 20190414
  51. ZOLEDRONIC ACID [Concomitant]
     Active Substance: ZOLEDRONIC ACID
     Route: 042
     Dates: start: 20160226
  52. ZOPICLONE [Concomitant]
     Active Substance: ZOPICLONE
     Route: 048
     Dates: start: 20160217
  53. BUDESONIDE [Concomitant]
     Active Substance: BUDESONIDE
     Route: 048
     Dates: start: 20190403, end: 20190523

REACTIONS (14)
  - Pulmonary embolism [Fatal]
  - Acute kidney injury [Recovered/Resolved]
  - Weight decreased [Recovered/Resolved]
  - Rectal haemorrhage [Not Recovered/Not Resolved]
  - Hypomagnesaemia [Recovered/Resolved]
  - Decreased appetite [Not Recovered/Not Resolved]
  - Cholelithiasis [Not Recovered/Not Resolved]
  - Vomiting [Recovered/Resolved]
  - Rash pruritic [Recovered/Resolved]
  - Back pain [Not Recovered/Not Resolved]
  - Diarrhoea [Recovered/Resolved]
  - Diarrhoea [Recovered/Resolved]
  - Diarrhoea [Recovered/Resolved]
  - Urinary tract infection [Recovered/Resolved]

NARRATIVE: CASE EVENT DATE: 20160323
